FAERS Safety Report 7472230-6 (Version None)
Quarter: 2011Q2

REPORT INFORMATION
  Report Type: 
  Country: None (occurrence: None)
  Receive Date: 20110502
  Receipt Date: 20110420
  Transmission Date: 20111010
  Serious: Yes (Death)
  Sender: FDA-Public Use
  Company Number: 2011MA003643

PATIENT
  Age: 89 Year
  Sex: Female

DRUGS (18)
  1. ROPINIROLE [Suspect]
     Indication: PARKINSON'S DISEASE
     Dosage: 6 MG;QD;PO
     Route: 048
  2. BISOPROLOL FUMARATE [Concomitant]
  3. DIGOXIN [Concomitant]
  4. SPARTEINE [Concomitant]
  5. AMOXICILLIN [Concomitant]
  6. RISPERIDONE [Suspect]
     Indication: PARKINSON'S DISEASE
     Dosage: ;PO
     Route: 048
  7. SINEMET CR [Concomitant]
  8. CARBIMAZOLE [Concomitant]
  9. FUROSEMIDE [Concomitant]
  10. ROPINIROLE [Concomitant]
  11. ACETYL SALICYLIC ACID USP BAT [Concomitant]
  12. FERROUS SULFATE TAB [Concomitant]
  13. SINEMET [Concomitant]
  14. CARBIDOPA [Concomitant]
  15. FORTISIP [Concomitant]
  16. LEVODOPA [Concomitant]
  17. AMOXICILLIN [Concomitant]
  18. LACTULOSE [Concomitant]

REACTIONS (4)
  - OFF LABEL USE [None]
  - MEDICATION ERROR [None]
  - WRONG DRUG ADMINISTERED [None]
  - DRUG ADMINISTRATION ERROR [None]
